FAERS Safety Report 24665207 (Version 3)
Quarter: 2025Q2

REPORT INFORMATION
  Report Type: Report from Study
  Country: IN (occurrence: IN)
  Receive Date: 20241126
  Receipt Date: 20250408
  Transmission Date: 20250716
  Serious: Yes (Hospitalization)
  Sender: EISAI
  Company Number: IN-Eisai-EC-2024-179470

PATIENT
  Age: 59 Year
  Sex: Female

DRUGS (3)
  1. LENVATINIB [Suspect]
     Active Substance: LENVATINIB
     Indication: Papillary thyroid cancer
     Dates: start: 202401, end: 202402
  2. LENVATINIB [Suspect]
     Active Substance: LENVATINIB
     Dates: start: 2023
  3. LENVATINIB [Suspect]
     Active Substance: LENVATINIB
     Dates: start: 20241121

REACTIONS (3)
  - Hypertension [Recovered/Resolved]
  - Decreased appetite [Unknown]
  - Insomnia [Unknown]

NARRATIVE: CASE EVENT DATE: 20240101
